FAERS Safety Report 4280957-2 (Version None)
Quarter: 2004Q1

REPORT INFORMATION
  Report Type: 
  Country: None (occurrence: None)
  Receive Date: 20040129
  Receipt Date: 20040123
  Transmission Date: 20041129
  Serious: Yes (Hospitalization, Disabling, Other)
  Sender: FDA-Public Use
  Company Number: 200411110GDDC

PATIENT
  Sex: Male

DRUGS (2)
  1. CLEXANE [Suspect]
     Route: 058
     Dates: start: 20030916, end: 20031003
  2. ASPIRIN [Suspect]
     Route: 048
     Dates: start: 20020916, end: 20031003

REACTIONS (11)
  - ANOREXIA [None]
  - BACK PAIN [None]
  - DYSARTHRIA [None]
  - DYSPHAGIA [None]
  - DYSPNOEA [None]
  - HAEMATURIA [None]
  - HAEMORRHAGE [None]
  - SOMNOLENCE [None]
  - TACHYCARDIA [None]
  - URINARY RETENTION [None]
  - URINARY TRACT INFECTION [None]
